FAERS Safety Report 5883350-1 (Version None)
Quarter: 2008Q3

REPORT INFORMATION
  Report Type: 
  Country: None (occurrence: None)
  Receive Date: 20080910
  Receipt Date: 20080821
  Transmission Date: 20090109
  Serious: Yes (Other)
  Sender: FDA-Public Use
  Company Number: 2008PV000065

PATIENT
  Age: 65 Year
  Sex: Male

DRUGS (1)
  1. DEPOCYT [Suspect]
     Indication: METASTASES TO MENINGES
     Dosage: 50 MG; INTH
     Route: 037

REACTIONS (1)
  - CAUDA EQUINA SYNDROME [None]
